FAERS Safety Report 18456572 (Version 1)
Quarter: 2020Q4

REPORT INFORMATION
  Report Type: Spontaneous
  Country: US (occurrence: US)
  Receive Date: 20201103
  Receipt Date: 20201103
  Transmission Date: 20210114
  Serious: Yes (Hospitalization)
  Sender: FDA-Public Use
  Company Number: US-STRIDES ARCOLAB LIMITED-2020SP013088

PATIENT
  Age: 52 Year
  Sex: Female

DRUGS (5)
  1. ADALIMUMAB [Concomitant]
     Active Substance: ADALIMUMAB
     Indication: COLITIS ULCERATIVE
     Dosage: UNK
     Route: 065
  2. PREDNISOLONE. [Suspect]
     Active Substance: PREDNISOLONE
     Indication: COLITIS ULCERATIVE
     Dosage: UNK
     Route: 065
  3. SUMATRIPTAN. [Concomitant]
     Active Substance: SUMATRIPTAN
     Indication: NAUSEA
  4. METHOTREXATE. [Concomitant]
     Active Substance: METHOTREXATE
     Indication: COLITIS ULCERATIVE
     Dosage: UNK
     Route: 065
  5. SUMATRIPTAN. [Concomitant]
     Active Substance: SUMATRIPTAN
     Indication: HEADACHE
     Dosage: UNK
     Route: 065

REACTIONS (4)
  - Cerebral venous sinus thrombosis [Recovered/Resolved]
  - Muscular weakness [Recovered/Resolved]
  - Superior sagittal sinus thrombosis [Recovered/Resolved]
  - Hypoaesthesia [Recovered/Resolved]
